FAERS Safety Report 19932133 (Version 1)
Quarter: 2021Q4

REPORT INFORMATION
  Report Type: Spontaneous
  Country: US (occurrence: US)
  Receive Date: 20211007
  Receipt Date: 20211007
  Transmission Date: 20220303
  Serious: Yes (Hospitalization)
  Sender: FDA-Public Use
  Company Number: None

PATIENT
  Age: 52 Year
  Sex: Male
  Weight: 102.15 kg

DRUGS (22)
  1. REGEN-COV [Suspect]
     Active Substance: CASIRIVIMAB\IMDEVIMAB
     Indication: COVID-19
     Dosage: ?          OTHER FREQUENCY:ONCE;
     Route: 042
     Dates: start: 20211001, end: 20211001
  2. ROSUVASTATIN [Concomitant]
     Active Substance: ROSUVASTATIN
     Dates: start: 20211003
  3. REMDESIVIR [Concomitant]
     Active Substance: REMDESIVIR
     Dates: start: 20211002, end: 20211006
  4. TYLENOL [Concomitant]
     Active Substance: ACETAMINOPHEN
     Dates: start: 20211001
  5. BENADRYL [Concomitant]
     Active Substance: DIPHENHYDRAMINE HYDROCHLORIDE
     Dates: start: 20211001
  6. EPINEPHRINE [Concomitant]
     Active Substance: EPINEPHRINE
     Dates: start: 20211001
  7. HYDROCORTISONE SODIUM SUCCINATE [Concomitant]
     Active Substance: HYDROCORTISONE SODIUM SUCCINATE
     Dates: start: 20211001
  8. METOCLOPRAMIDE [Concomitant]
     Active Substance: METOCLOPRAMIDE
     Dates: start: 20211001
  9. ZOFRAN [Concomitant]
     Active Substance: ONDANSETRON HYDROCHLORIDE
     Dates: start: 20211001
  10. COMPAZINE [Concomitant]
     Active Substance: PROCHLORPERAZINE MALEATE
     Dates: start: 20211001
  11. ALBUTEROL [Concomitant]
     Active Substance: ALBUTEROL
     Dates: start: 20211001
  12. DECADRON [Concomitant]
     Active Substance: DEXAMETHASONE
     Dates: start: 20211001, end: 20211001
  13. WELLBUTRIN XL [Concomitant]
     Active Substance: BUPROPION HYDROCHLORIDE
     Dates: start: 20211002
  14. CITALOPRAM [Concomitant]
     Active Substance: CITALOPRAM HYDROBROMIDE
     Dates: start: 20211002
  15. LASIX [Concomitant]
     Active Substance: FUROSEMIDE
     Dates: start: 20211001, end: 20211001
  16. DEXTROSE [Concomitant]
     Active Substance: DEXTROSE
     Dates: start: 20211001
  17. GLUCAGON [Concomitant]
     Active Substance: GLUCAGON
     Dates: start: 20211001
  18. Insulin Lispro Injection [Concomitant]
     Dates: start: 20211001
  19. ENOXAPARIN [Concomitant]
     Active Substance: ENOXAPARIN
     Dates: start: 20211001
  20. DECADRON [Concomitant]
     Active Substance: DEXAMETHASONE
     Dates: start: 20211002
  21. XANAX [Concomitant]
     Active Substance: ALPRAZOLAM
     Dates: start: 20211001, end: 20211002
  22. MIRALAX, GLYCOLAX [Concomitant]
     Dates: start: 20211001

REACTIONS (2)
  - Pneumonia [None]
  - Haemoptysis [None]

NARRATIVE: CASE EVENT DATE: 20211001
